FAERS Safety Report 7671069-6 (Version None)
Quarter: 2011Q3

REPORT INFORMATION
  Report Type: 
  Country: None (occurrence: None)
  Receive Date: 20110803
  Receipt Date: 20110721
  Transmission Date: 20111222
  Serious: Yes (Hospitalization)
  Sender: FDA-Public Use
  Company Number: 1000022316

PATIENT
  Age: 43 Year
  Sex: Female

DRUGS (1)
  1. PROPRANOLOL HYDROCHLORIDE [Suspect]
     Indication: MIGRAINE
     Dosage: 60 MG (60 MG, 1 IN 1 D),

REACTIONS (14)
  - CONGESTIVE CARDIOMYOPATHY [None]
  - PRESYNCOPE [None]
  - SINUS TACHYCARDIA [None]
  - BLOOD PRESSURE INCREASED [None]
  - NAUSEA [None]
  - LEFT VENTRICULAR DYSFUNCTION [None]
  - PHAEOCHROMOCYTOMA [None]
  - PALPITATIONS [None]
  - HYPERHIDROSIS [None]
  - HYPOTENSION [None]
  - VENTRICULAR HYPOKINESIA [None]
  - VOMITING [None]
  - DILATATION VENTRICULAR [None]
  - HAEMODYNAMIC INSTABILITY [None]
